FAERS Safety Report 9881383 (Version 2)
Quarter: 2014Q2

REPORT INFORMATION
  Report Type: Spontaneous
  Country: US (occurrence: US)
  Receive Date: 20140207
  Receipt Date: 20140420
  Transmission Date: 20141212
  Serious: No
  Sender: FDA-Public Use
  Company Number: US-009507513-1402USA002936

PATIENT
  Age: 17 Year
  Sex: Female

DRUGS (1)
  1. NEXPLANON [Suspect]
     Indication: CONTRACEPTION
     Dosage: UNK, STANDARD INSERTION
     Route: 059
     Dates: start: 20130814

REACTIONS (4)
  - Implant site irritation [Unknown]
  - Implant site erythema [Unknown]
  - Injection site inflammation [Unknown]
  - Medical device complication [Unknown]
